FAERS Safety Report 6725780-1 (Version None)
Quarter: 2010Q2

REPORT INFORMATION
  Report Type: 
  Country: None (occurrence: None)
  Receive Date: 20100514
  Receipt Date: 20100507
  Transmission Date: 20101027
  Serious: Yes (Hospitalization)
  Sender: FDA-Public Use
  Company Number: FR-ABBOTT-10P-056-0643141-00

PATIENT
  Age: 6 Year
  Sex: Male

DRUGS (10)
  1. MICROPAKINE [Suspect]
     Indication: EPILEPSY
     Dosage: PROLONGED-RELEASE GRANULES
     Route: 048
     Dates: start: 20100413
  2. ROCEPHIN [Suspect]
     Indication: EAR INFECTION
     Route: 042
     Dates: start: 20100418, end: 20100421
  3. NUREFLEX [Suspect]
     Indication: EAR INFECTION
     Route: 048
     Dates: start: 20100418, end: 20100421
  4. PRODILANTIN [Suspect]
     Indication: EPILEPSY
     Route: 042
     Dates: start: 20100418, end: 20100420
  5. PRODILANTIN [Suspect]
     Route: 042
     Dates: start: 20100420, end: 20100421
  6. RIVOTRIL [Suspect]
     Indication: EPILEPSY
     Route: 048
     Dates: start: 20100418, end: 20100420
  7. RIVOTRIL [Suspect]
     Route: 048
     Dates: start: 20100420, end: 20100421
  8. URBANYL [Concomitant]
     Indication: DRUG USE FOR UNKNOWN INDICATION
     Dates: end: 20100420
  9. TEGRETOL [Concomitant]
     Indication: DRUG USE FOR UNKNOWN INDICATION
  10. DI-HYDAN [Concomitant]
     Indication: DRUG USE FOR UNKNOWN INDICATION
     Dates: start: 20100421

REACTIONS (4)
  - MOUTH ULCERATION [None]
  - PRURITUS [None]
  - RASH MACULO-PAPULAR [None]
  - TOXIC SKIN ERUPTION [None]
